FAERS Safety Report 14798448 (Version 1)
Quarter: 2018Q2

REPORT INFORMATION
  Report Type: Spontaneous
  Country: US (occurrence: US)
  Receive Date: 20180424
  Receipt Date: 20180424
  Transmission Date: 20180711
  Serious: No
  Sender: FDA-Public Use
  Company Number: US-PFIZER INC-2018165768

PATIENT
  Age: 59 Year
  Sex: Female

DRUGS (1)
  1. EUCRISA [Suspect]
     Active Substance: CRISABOROLE
     Dosage: UNK, THREE TIMES A DAY
     Route: 061
     Dates: start: 2018

REACTIONS (2)
  - Product use issue [Unknown]
  - Burning sensation [Recovered/Resolved]
